FAERS Safety Report 11495304 (Version 2)
Quarter: 2015Q3

REPORT INFORMATION
  Report Type: Spontaneous
  Country: US (occurrence: US)
  Receive Date: 20150911
  Receipt Date: 20150914
  Transmission Date: 20151125
  Serious: No
  Sender: FDA-Public Use
  Company Number: US-ASTRAZENECA-2015SE84467

PATIENT
  Sex: Female

DRUGS (1)
  1. SYMBICORT [Suspect]
     Active Substance: BUDESONIDE\FORMOTEROL FUMARATE DIHYDRATE
     Dosage: 160/4.5 UG TWO TIMES A DAY
     Route: 055

REACTIONS (7)
  - Hypersensitivity [Unknown]
  - Product quality issue [Unknown]
  - Visual acuity reduced [Unknown]
  - Abdominal pain upper [Unknown]
  - Drug dose omission [Unknown]
  - Pertussis [Unknown]
  - Cough [Unknown]
